FAERS Safety Report 4753169-3 (Version None)
Quarter: 2005Q3

REPORT INFORMATION
  Report Type: 
  Country: None (occurrence: None)
  Receive Date: 20050823
  Receipt Date: 20050810
  Transmission Date: 20060218
  Serious: Yes (Other)
  Sender: FDA-Public Use
  Company Number: 2005088789

PATIENT
  Age: 54 Year
  Sex: Female
  Weight: 149.687 kg

DRUGS (10)
  1. CELEBREX [Suspect]
     Indication: OSTEOARTHRITIS
     Dosage: ORAL
     Route: 048
     Dates: end: 20020101
  2. BEXTRA [Suspect]
     Indication: FIBROMYALGIA
     Dosage: 40 MG (20 MG, 2 IN 1 D), ORAL
     Route: 048
  3. BEXTRA [Suspect]
     Indication: OSTEOARTHRITIS
     Dosage: 40 MG (20 MG, 2 IN 1 D), ORAL
     Route: 048
  4. PLAVIX [Concomitant]
  5. ZAROXOLYN [Concomitant]
  6. VITAMIN B12 [Concomitant]
  7. POTASSIUM CHLORIDE [Concomitant]
  8. HYDROCHLOROTHIAZIDE [Concomitant]
  9. SYNTHROID [Concomitant]
  10. EFFEXOR XR [Concomitant]

REACTIONS (5)
  - CARDIAC STRESS TEST ABNORMAL [None]
  - CATHETERISATION CARDIAC ABNORMAL [None]
  - DRUG EFFECT DECREASED [None]
  - MYALGIA [None]
  - PAIN IN EXTREMITY [None]
